FAERS Safety Report 21769992 (Version 1)
Quarter: 2022Q4

REPORT INFORMATION
  Report Type: Spontaneous
  Country: DK (occurrence: DK)
  Receive Date: 20221223
  Receipt Date: 20221223
  Transmission Date: 20230113
  Serious: Yes (Other)
  Sender: FDA-Public Use
  Company Number: None

PATIENT
  Age: 53 Year

DRUGS (5)
  1. EPIRUBICIN [Suspect]
     Active Substance: EPIRUBICIN
     Indication: Breast cancer
     Dosage: STRENGTH: UNKNOWN. DOSAGE: REDUCED DOSE (75%), ORIGINAL DOSAGE 170 MG, DURATION : 22 DAYS, TREATMENT
     Dates: start: 20181212, end: 20190103
  2. EPIRUBICIN [Suspect]
     Active Substance: EPIRUBICIN
     Dosage: STRENGTH: UNKNOWN. DOSAGE: 170 MG. DURATION : 45 DAYS, TREATMENTS ON 31AUG2018, 24SEP2018, 15OCT2018
     Dates: start: 20180831, end: 20181015
  3. PACLITAXEL [Suspect]
     Active Substance: PACLITAXEL
     Indication: Breast cancer
     Dosage: DOSAGE: 150 MG. STRENGTH: UNKNOWN.THERAPY END DATE : NASK
     Dates: start: 20181109
  4. CYCLOPHOSPHAMIDE [Suspect]
     Active Substance: CYCLOPHOSPHAMIDE
     Indication: Breast cancer
     Dosage: DOSAGE: REDUCED DOSE (75%), ORIGINAL DOSAGE 1100 MG , STRENGTH: UNKNOWN. DURATION : 22 DAYS, TREATME
     Dates: start: 20181212, end: 20190103
  5. CYCLOPHOSPHAMIDE [Suspect]
     Active Substance: CYCLOPHOSPHAMIDE
     Dosage: DOSAGE: 1100 MG. STRENGTH: UNKNOWN. DURATION : 45 DAYS, TREATMENTS ON 31AUG2018, 24SEP2018, 15OCT201
     Dates: start: 20180831, end: 20181015

REACTIONS (5)
  - Brain injury [Not Recovered/Not Resolved]
  - Fatigue [Not Recovered/Not Resolved]
  - Aphasia [Unknown]
  - Dizziness [Unknown]
  - Headache [Unknown]

NARRATIVE: CASE EVENT DATE: 20190101
